FAERS Safety Report 14760429 (Version 2)
Quarter: 2018Q2

REPORT INFORMATION
  Report Type: Spontaneous
  Country: US (occurrence: US)
  Receive Date: 20180414
  Receipt Date: 20180420
  Transmission Date: 20180711
  Serious: No
  Sender: FDA-Public Use
  Company Number: US-JNJFOC-20180344767

PATIENT
  Sex: Male
  Weight: 113.4 kg

DRUGS (1)
  1. STELARA [Suspect]
     Active Substance: USTEKINUMAB
     Indication: CROHN^S DISEASE
     Dosage: 9 MONTHS TO A YEAR AGO
     Route: 058

REACTIONS (1)
  - Drug ineffective [Not Recovered/Not Resolved]
